FAERS Safety Report 18913291 (Version 1)
Quarter: 2021Q1

REPORT INFORMATION
  Report Type: Report from Study
  Country: ES (occurrence: ES)
  Receive Date: 20210218
  Receipt Date: 20210218
  Transmission Date: 20210420
  Serious: Yes (Hospitalization)
  Sender: FDA-Public Use
  Company Number: ES-JNJFOC-20190812458

PATIENT
  Age: 17 Year
  Sex: Female
  Weight: 48.5 kg

DRUGS (12)
  1. FOLIC ACID. [Concomitant]
     Active Substance: FOLIC ACID
     Indication: COLITIS ULCERATIVE
     Route: 048
     Dates: start: 20190201
  2. PENTASA [Concomitant]
     Active Substance: MESALAMINE
     Indication: COLITIS ULCERATIVE
     Route: 048
     Dates: start: 20171020
  3. AZATHIOPRINE. [Concomitant]
     Active Substance: AZATHIOPRINE
     Indication: COLITIS ULCERATIVE
     Route: 048
     Dates: start: 20190122
  4. DIANE (CYPROTERONE ACETATE\ETHINYL ESTRADIOL) [Concomitant]
     Active Substance: CYPROTERONE ACETATE\ETHINYL ESTRADIOL
     Indication: CONTRACEPTION
     Route: 048
     Dates: start: 20180101
  5. VITAMIN B12 [Concomitant]
     Active Substance: CYANOCOBALAMIN
     Indication: COLITIS ULCERATIVE
     Route: 048
     Dates: start: 20190201
  6. PYRIDOXINE [Concomitant]
     Active Substance: PYRIDOXINE
     Indication: PARAESTHESIA
     Route: 048
     Dates: start: 20190614, end: 20190726
  7. GOLIMUMAB [Suspect]
     Active Substance: GOLIMUMAB
     Indication: COLITIS ULCERATIVE
     Dosage: MOST RECENT 23?JUL?2019
     Route: 058
     Dates: start: 20190315, end: 20190723
  8. ROACUTAN [Concomitant]
     Active Substance: ISOTRETINOIN
     Indication: ACNE
     Dosage: UNKNOWN
     Route: 048
     Dates: start: 20180701
  9. VITAMIN B12 [Concomitant]
     Active Substance: CYANOCOBALAMIN
     Indication: VITAMIN B12 DECREASED
  10. VITAMIN D                          /00107901/ [Concomitant]
     Active Substance: ERGOCALCIFEROL
     Indication: VITAMIN D DECREASED
     Route: 048
     Dates: start: 20190614
  11. FERPLEX [Concomitant]
     Indication: COLITIS ULCERATIVE
     Route: 048
     Dates: start: 20190201
  12. CALCIUM                            /00060701/ [Concomitant]
     Active Substance: CALCIUM
     Indication: COLITIS ULCERATIVE
     Route: 048
     Dates: start: 20190201

REACTIONS (1)
  - Clostridium difficile infection [Recovered/Resolved]

NARRATIVE: CASE EVENT DATE: 20190807
